FAERS Safety Report 5953221-0 (Version None)
Quarter: 2008Q4

REPORT INFORMATION
  Report Type: 
  Country: None (occurrence: None)
  Receive Date: 20081114
  Receipt Date: 20081031
  Transmission Date: 20090506
  Serious: Yes (Hospitalization)
  Sender: FDA-Public Use
  Company Number: PHHY2008DE16383

PATIENT
  Sex: Female

DRUGS (2)
  1. PROVAS [Suspect]
  2. ATENOLOL AL COMP [Concomitant]

REACTIONS (4)
  - BLOOD CREATINE PHOSPHOKINASE INCREASED [None]
  - MYALGIA [None]
  - PARAESTHESIA [None]
  - PARALYSIS [None]
